FAERS Safety Report 16849839 (Version 1)
Quarter: 2019Q4

REPORT INFORMATION
  Report Type: Spontaneous
  Country: US (occurrence: US)
  Receive Date: 20190925
  Receipt Date: 20190925
  Transmission Date: 20200122
  Serious: Yes (Life-Threatening, Hospitalization)
  Sender: FDA-Public Use
  Company Number: None

PATIENT
  Age: 63 Year
  Sex: Female
  Weight: 71.6 kg

DRUGS (10)
  1. CARBOPLATIN. [Suspect]
     Active Substance: CARBOPLATIN
     Indication: SQUAMOUS CELL CARCINOMA
     Dosage: ?          OTHER FREQUENCY:ONCE;?
     Route: 042
     Dates: start: 20190816, end: 20190816
  2. SERTRALINE 100 MG TABLET [Concomitant]
  3. MAGNESIUM OXIDE 400 MG TABLET [Concomitant]
  4. ESOMEPRAZOLE 40 MG CAPSULE [Concomitant]
  5. ONDANSETRON 8 MG TABLET ORAL DISINTEGRATING [Concomitant]
  6. CYCLOBENZAPRINE 5 MG TABLET [Concomitant]
     Active Substance: CYCLOBENZAPRINE
  7. FOLIC ACID 1 MG TABLET [Concomitant]
     Active Substance: FOLIC ACID
  8. CETIRIZINE [Concomitant]
     Active Substance: CETIRIZINE HYDROCHLORIDE
  9. DORZOLAMIDE OPHTHALMIC SOLUTION [Concomitant]
     Active Substance: DORZOLAMIDE
  10. ACETAMINOPHEN. [Concomitant]
     Active Substance: ACETAMINOPHEN

REACTIONS (7)
  - Nausea [None]
  - Flushing [None]
  - Blood pressure decreased [None]
  - Infusion related reaction [None]
  - Dyspnoea [None]
  - Chest pain [None]
  - Cardiopulmonary failure [None]

NARRATIVE: CASE EVENT DATE: 20190816
